FAERS Safety Report 5003660-X (Version None)
Quarter: 2006Q2

REPORT INFORMATION
  Report Type: 
  Country: None (occurrence: None)
  Receive Date: 20060516
  Receipt Date: 20051213
  Transmission Date: 20061013
  Serious: Yes (Hospitalization, Other)
  Sender: FDA-Public Use
  Company Number: US-MERCK-0512USA02154

PATIENT
  Age: 81 Year
  Sex: Female
  Weight: 60 kg

DRUGS (2)
  1. VIOXX [Suspect]
     Indication: SPONDYLITIS
     Route: 048
  2. PREMARIN [Concomitant]
     Route: 065
     Dates: end: 20031213

REACTIONS (24)
  - ANAEMIA [None]
  - BACK PAIN [None]
  - CELLULITIS [None]
  - CHEST DISCOMFORT [None]
  - CONSTIPATION [None]
  - DRUG TOXICITY [None]
  - DYSPNOEA [None]
  - EMPHYSEMA [None]
  - FATIGUE [None]
  - GAIT DISTURBANCE [None]
  - GASTRITIS [None]
  - GASTROINTESTINAL HAEMORRHAGE [None]
  - HYPERLIPIDAEMIA [None]
  - INFUSION SITE CELLULITIS [None]
  - INJURY [None]
  - INSOMNIA [None]
  - INTERNATIONAL NORMALISED RATIO INCREASED [None]
  - MALAISE [None]
  - MOBILITY DECREASED [None]
  - NEPHROLITHIASIS [None]
  - PULMONARY EMBOLISM [None]
  - PYREXIA [None]
  - ROAD TRAFFIC ACCIDENT [None]
  - SINUSITIS [None]
